FAERS Safety Report 18054168 (Version 5)
Quarter: 2020Q4

REPORT INFORMATION
  Report Type: Spontaneous
  Country: GB (occurrence: GB)
  Receive Date: 20200722
  Receipt Date: 20201005
  Transmission Date: 20210113
  Serious: Yes (Other)
  Sender: FDA-Public Use
  Company Number: NVSC2020GB202371

PATIENT
  Age: 14 Year
  Sex: Female
  Weight: 76 kg

DRUGS (4)
  1. SOMATROPIN. [Suspect]
     Active Substance: SOMATROPIN
     Dosage: 0.5 MG, DAILY
     Route: 065
     Dates: start: 202006
  2. SOMATROPIN. [Suspect]
     Active Substance: SOMATROPIN
     Dosage: 0.3 DAILY
     Route: 065
     Dates: start: 202007
  3. NACL [Concomitant]
     Active Substance: SODIUM CHLORIDE
     Indication: PRODUCT USED FOR UNKNOWN INDICATION
     Dosage: UNK UNK, QD (90 MG/10 ML DAILY)
     Route: 065
     Dates: start: 202006
  4. SOMATROPIN. [Suspect]
     Active Substance: SOMATROPIN
     Indication: GROWTH HORMONE DEFICIENCY
     Dosage: 0.8 MG, DAILY
     Route: 058
     Dates: start: 20180425

REACTIONS (10)
  - Malaise [Not Recovered/Not Resolved]
  - Mental status changes [Not Recovered/Not Resolved]
  - Suicidal ideation [Unknown]
  - Abdominal discomfort [Not Recovered/Not Resolved]
  - Depressed mood [Unknown]
  - Anxiety [Not Recovered/Not Resolved]
  - Tearfulness [Not Recovered/Not Resolved]
  - Headache [Not Recovered/Not Resolved]
  - Emotional distress [Unknown]
  - Injection site bruising [Unknown]
